FAERS Safety Report 7523633-2 (Version None)
Quarter: 2011Q2

REPORT INFORMATION
  Report Type: 
  Country: None (occurrence: None)
  Receive Date: 20110601
  Receipt Date: 20110601
  Transmission Date: 20111010
  Serious: Yes (Hospitalization, Disabling)
  Sender: FDA-Public Use
  Company Number: None

PATIENT
  Age: 74 Year
  Sex: Female
  Weight: 39.7 kg

DRUGS (21)
  1. METOCLOPRAMIDE [Concomitant]
  2. ESOMEPRAZOLE MAGNESIUM [Concomitant]
  3. GABAPENTIN [Concomitant]
  4. CETUXIMAB 100 MG/50 ML [Suspect]
     Indication: OROPHARYNGEAL CANCER STAGE UNSPECIFIED
     Dosage: 250 MG/M2 (325 MG) EVERY 2 WEEKS INTRAVENOUS
     Route: 042
     Dates: start: 20100617
  5. CETUXIMAB 100 MG/50 ML [Suspect]
     Indication: OROPHARYNGEAL CANCER STAGE UNSPECIFIED
     Dosage: 250 MG/M2 (325 MG) EVERY 2 WEEKS INTRAVENOUS
     Route: 042
     Dates: start: 20100628
  6. CETUXIMAB 100 MG/50 ML [Suspect]
     Indication: OROPHARYNGEAL CANCER STAGE UNSPECIFIED
     Dosage: 250 MG/M2 (325 MG) EVERY 2 WEEKS INTRAVENOUS
     Route: 042
     Dates: start: 20100712
  7. AMOXICILLIN AND CLAVULANATE POTASSIUM [Concomitant]
  8. GUAIFENESIN [Concomitant]
  9. CARVEDILOL [Concomitant]
  10. ALBUTEROL SULFATE AUTOHALER [Concomitant]
  11. CHLORHEXIDINE GLUCONATE [Concomitant]
  12. TRAMADOL HCL [Concomitant]
  13. IPRATROPIUM BROMIDE [Concomitant]
  14. MULTI-VITAMIN [Concomitant]
  15. FAMOTIDINE [Concomitant]
  16. PACLITAXEL [Suspect]
     Indication: OROPHARYNGEAL CANCER STAGE UNSPECIFIED
     Dosage: 150MG EVERY WEEK SUBCUTANEOUS
     Route: 058
     Dates: start: 20100409, end: 20100518
  17. NYSTATIN [Concomitant]
  18. HYDROCODONE BITARTRATE AND ACETAMINOPHEN [Concomitant]
  19. SENNA-MINT WAF [Concomitant]
  20. ENOXAPARIN [Concomitant]
  21. FLUCONAZOLE [Concomitant]

REACTIONS (6)
  - DEVICE OCCLUSION [None]
  - DYSPHAGIA [None]
  - CARDIAC FAILURE CONGESTIVE [None]
  - HYPOVOLAEMIA [None]
  - PULMONARY OEDEMA [None]
  - FLUID OVERLOAD [None]
